FAERS Safety Report 6651062-2 (Version None)
Quarter: 2010Q1

REPORT INFORMATION
  Report Type: 
  Country: None (occurrence: None)
  Receive Date: 20100325
  Receipt Date: 20100319
  Transmission Date: 20100710
  Serious: Yes (Death)
  Sender: FDA-Public Use
  Company Number: MX-BAYER-201012616LA

PATIENT
  Age: 12 Year
  Sex: Male

DRUGS (1)
  1. NEXAVAR [Suspect]
     Indication: RENAL CELL CARCINOMA
     Dosage: AS USED: 200 MG
     Route: 048
     Dates: start: 20070504, end: 20090803

REACTIONS (1)
  - NEUTROPENIA [None]
